FAERS Safety Report 6606410-6 (Version None)
Quarter: 2010Q1

REPORT INFORMATION
  Report Type: 
  Country: None (occurrence: None)
  Receive Date: 20100226
  Receipt Date: 20100216
  Transmission Date: 20100710
  Serious: Yes (Other)
  Sender: FDA-Public Use
  Company Number: JP-PFIZER INC-2010023342

PATIENT
  Sex: Male

DRUGS (5)
  1. GABAPEN [Suspect]
  2. TOPIRAMATE [Suspect]
     Dosage: 25 MG PER DAY
     Route: 048
     Dates: start: 20090101
  3. TOPIRAMATE [Suspect]
     Dosage: 50 MG PER DAY
  4. TOPIRAMATE [Suspect]
     Dosage: 100 MG PER DAY
  5. TEGRETOL [Concomitant]

REACTIONS (1)
  - ANTICONVULSANT DRUG LEVEL DECREASED [None]
